FAERS Safety Report 8065240-1 (Version None)
Quarter: 2012Q1

REPORT INFORMATION
  Report Type: 
  Country: None (occurrence: None)
  Receive Date: 20120124
  Receipt Date: 20120116
  Transmission Date: 20120608
  Serious: Yes (Other)
  Sender: FDA-Public Use
  Company Number: US-BAYER-2011-061302

PATIENT
  Age: 32 Year
  Sex: Female
  Weight: 80.726 kg

DRUGS (6)
  1. CIPROFLOXACIN [Concomitant]
     Dosage: 500 MG, BID
     Route: 048
  2. SILVADENE [Concomitant]
     Dosage: 1 %, BID
     Route: 061
  3. ANTIHISTAMINES [Concomitant]
     Dosage: UNK UNK, PRN
  4. TOPAMAX [Concomitant]
     Route: 048
  5. YAZ [Suspect]
     Indication: CONTRACEPTION
     Dosage: UNK
     Dates: start: 20090701
  6. TREXIMET [Concomitant]
     Dosage: UNK UNK, PRN
     Route: 048

REACTIONS (6)
  - EMOTIONAL DISTRESS [None]
  - PSYCHOLOGICAL TRAUMA [None]
  - DEEP VEIN THROMBOSIS [None]
  - ANXIETY [None]
  - PAIN IN EXTREMITY [None]
  - RASH [None]
